FAERS Safety Report 7834159-0 (Version None)
Quarter: 2011Q4

REPORT INFORMATION
  Report Type: 
  Country: None (occurrence: None)
  Receive Date: 20111024
  Receipt Date: 20111013
  Transmission Date: 20120403
  Serious: Yes (Hospitalization, Other)
  Sender: FDA-Public Use
  Company Number: PHHY2011CA89088

PATIENT
  Sex: Female

DRUGS (3)
  1. ANTIBIOTICS [Concomitant]
  2. ATIVAN [Concomitant]
     Dosage: 1 MG, DAILY
     Route: 048
  3. CLOZARIL [Suspect]
     Indication: SCHIZOPHRENIA
     Dosage: 500 MG / DAY PRN
     Route: 048
     Dates: start: 20050630

REACTIONS (4)
  - ACIDOSIS [None]
  - DYSPNOEA [None]
  - SOMNOLENCE [None]
  - RESPIRATORY DEPRESSION [None]
